FAERS Safety Report 22399554 (Version 2)
Quarter: 2023Q2

REPORT INFORMATION
  Report Type: Spontaneous
  Country: US (occurrence: US)
  Receive Date: 20230602
  Receipt Date: 20230612
  Transmission Date: 20230722
  Serious: Yes (Other)
  Sender: FDA-Public Use
  Company Number: US-009507513-2305USA010313

PATIENT
  Sex: Male

DRUGS (7)
  1. VERQUVO [Suspect]
     Active Substance: VERICIGUAT
     Indication: Cardiovascular event prophylaxis
     Dosage: 10 MILLIGRAM, QD
     Route: 048
     Dates: start: 20230319, end: 20230527
  2. ENTRESTO [Concomitant]
     Active Substance: SACUBITRIL\VALSARTAN
     Dosage: UNK
     Dates: end: 202303
  3. ENTRESTO [Concomitant]
     Active Substance: SACUBITRIL\VALSARTAN
     Dosage: UNK
     Dates: start: 20230527
  4. COREG [Concomitant]
     Active Substance: CARVEDILOL
     Dosage: UNK
  5. FARXIGA [Concomitant]
     Active Substance: DAPAGLIFLOZIN PROPANEDIOL
     Dosage: UNK
  6. XARELTO [Concomitant]
     Active Substance: RIVAROXABAN
     Dosage: UNK
  7. OMEPRAZOLE [Concomitant]
     Active Substance: OMEPRAZOLE
     Dosage: UNK

REACTIONS (4)
  - Angioedema [Unknown]
  - Urticaria [Recovering/Resolving]
  - Dyspepsia [Recovered/Resolved]
  - Hypotension [Unknown]

NARRATIVE: CASE EVENT DATE: 20230101
